FAERS Safety Report 9914487 (Version 1)
Quarter: 2014Q1

REPORT INFORMATION
  Report Type: Spontaneous
  Country: GR (occurrence: None)
  Receive Date: 20140218
  Receipt Date: 20140218
  Transmission Date: 20141002
  Serious: Yes (Other)
  Sender: FDA-Public Use
  Company Number: VAL_02980_2014

PATIENT
  Age: 14 Year
  Sex: Female

DRUGS (1)
  1. METOPROLOL [Suspect]
     Indication: VENTRICULAR ARRHYTHMIA
     Dosage: (50 MG BID)

REACTIONS (5)
  - Loss of consciousness [None]
  - Convulsion [None]
  - Ventricular tachycardia [None]
  - Device malfunction [None]
  - Sinus tachycardia [None]
